FAERS Safety Report 7170590-7 (Version None)
Quarter: 2010Q4

REPORT INFORMATION
  Report Type: 
  Country: None (occurrence: None)
  Receive Date: 20101217
  Receipt Date: 20101207
  Transmission Date: 20110411
  Serious: Yes (Congenital Anomaly)
  Sender: FDA-Public Use
  Company Number: A0738534A

PATIENT
  Sex: Male

DRUGS (2)
  1. PAXIL [Suspect]
     Indication: ANXIETY
  2. PAROXETINE [Suspect]
     Indication: ANXIETY
     Dates: start: 20050418, end: 20060322

REACTIONS (4)
  - CARDIAC MURMUR [None]
  - CONDUCTION DISORDER [None]
  - DRUG EXPOSURE DURING PREGNANCY [None]
  - VENTRICULAR SEPTAL DEFECT [None]
